FAERS Safety Report 12836922 (Version 1)
Quarter: 2016Q4

REPORT INFORMATION
  Report Type: Spontaneous
  Country: FR (occurrence: FR)
  Receive Date: 20161011
  Receipt Date: 20161011
  Transmission Date: 20170207
  Serious: Yes (Hospitalization)
  Sender: FDA-Public Use
  Company Number: FR-SA-2016SA184410

PATIENT
  Age: 83 Year
  Sex: Male

DRUGS (15)
  1. SOTALOL. [Concomitant]
     Active Substance: SOTALOL
  2. ROVAMYCINE [Suspect]
     Active Substance: SPIRAMYCIN
     Indication: INFECTION
     Route: 042
     Dates: start: 20160909, end: 20160912
  3. AUGMENTIN [Suspect]
     Active Substance: AMOXICILLIN\CLAVULANATE POTASSIUM
     Indication: PYREXIA
     Route: 048
     Dates: start: 20160902, end: 20160908
  4. CRESTOR [Concomitant]
     Active Substance: ROSUVASTATIN CALCIUM
  5. ROCEPHINE [Suspect]
     Active Substance: CEFTRIAXONE SODIUM
     Indication: INFECTION
     Route: 042
     Dates: start: 20160909, end: 20160912
  6. PREVISCAN [Suspect]
     Active Substance: FLUINDIONE
     Route: 048
     Dates: start: 20160909, end: 20160918
  7. COTAREG [Suspect]
     Active Substance: HYDROCHLOROTHIAZIDE\VALSARTAN
     Route: 048
     Dates: end: 20160908
  8. LASILIX [Concomitant]
     Active Substance: FUROSEMIDE
     Dates: end: 20160919
  9. SERESTA [Concomitant]
     Active Substance: OXAZEPAM
     Dates: start: 20160909
  10. COAPROVEL [Suspect]
     Active Substance: HYDROCHLOROTHIAZIDE\IRBESARTAN
     Route: 048
     Dates: start: 20160909
  11. STRESAM [Suspect]
     Active Substance: ETIFOXINE
     Indication: ANXIETY
     Route: 048
     Dates: end: 20160909
  12. KARDEGIC [Concomitant]
     Active Substance: ASPIRIN LYSINE
  13. EUPANTOL [Concomitant]
     Active Substance: PANTOPRAZOLE SODIUM
  14. TRANXENE T-TAB [Suspect]
     Active Substance: CLORAZEPATE DIPOTASSIUM
     Indication: ANXIETY
     Route: 048
     Dates: end: 20160909
  15. AUGMENTIN [Suspect]
     Active Substance: AMOXICILLIN\CLAVULANATE POTASSIUM
     Indication: COUGH
     Route: 048
     Dates: start: 20160902, end: 20160908

REACTIONS (3)
  - Eosinophilia [Recovered/Resolved]
  - Pyrexia [Recovered/Resolved]
  - Rash maculo-papular [Recovering/Resolving]

NARRATIVE: CASE EVENT DATE: 20160911
